FAERS Safety Report 15056580 (Version 1)
Quarter: 2018Q2

REPORT INFORMATION
  Report Type: Spontaneous
  Country: US (occurrence: US)
  Receive Date: 20180623
  Receipt Date: 20180623
  Transmission Date: 20180711
  Serious: No
  Sender: FDA-Public Use
  Company Number: US-GLENMARK PHARMACEUTICALS-2018GMK033517

PATIENT

DRUGS (2)
  1. LISINOPRIL. [Concomitant]
     Active Substance: LISINOPRIL
     Indication: HYPERTENSION
     Dosage: 12.5 MG, UNK
     Route: 048
  2. ALCLOMETASONE DIPROPIONATE. [Suspect]
     Active Substance: ALCLOMETASONE DIPROPIONATE
     Indication: ERYTHEMA
     Dosage: UNK, BID
     Route: 061
     Dates: start: 201501, end: 20180305

REACTIONS (3)
  - Incorrect drug administration duration [Unknown]
  - Product administered at inappropriate site [None]
  - No adverse event [Unknown]
